FAERS Safety Report 4459667-4 (Version None)
Quarter: 2004Q3

REPORT INFORMATION
  Report Type: 
  Country: None (occurrence: None)
  Receive Date: 20040923
  Receipt Date: 20040923
  Transmission Date: 20050211
  Serious: Yes (Death)
  Sender: FDA-Public Use
  Company Number: None

PATIENT
  Age: 10 Year
  Sex: Male
  Weight: 45 kg

DRUGS (6)
  1. DACTINOMYCIN [Suspect]
     Indication: RHABDOMYOSARCOMA
     Dosage: 0.045 MG/M2 INTRAVENOUS
     Route: 042
     Dates: start: 20040627, end: 20040831
  2. CYTOXAN [Suspect]
     Indication: RHABDOMYOSARCOMA
     Dosage: 2.2  G/M2  INTRAVENOUS
     Route: 042
     Dates: start: 20040627, end: 20040831
  3. VINCRISTINE [Concomitant]
  4. MESNA [Concomitant]
  5. NEUPOGEN [Concomitant]
  6. BACTRIM [Concomitant]

REACTIONS (22)
  - ABDOMINAL PAIN [None]
  - ACUTE RESPIRATORY DISTRESS SYNDROME [None]
  - BODY TEMPERATURE INCREASED [None]
  - CARDIAC ARREST [None]
  - COAGULOPATHY [None]
  - FLUID IMBALANCE [None]
  - GENERAL PHYSICAL HEALTH DETERIORATION [None]
  - HAEMODIALYSIS [None]
  - HAEMODYNAMIC INSTABILITY [None]
  - HEPATIC ENCEPHALOPATHY [None]
  - HEPATOBILIARY DISEASE [None]
  - HEPATOMEGALY [None]
  - NAUSEA [None]
  - OEDEMA [None]
  - PANCYTOPENIA [None]
  - PLEURAL EFFUSION [None]
  - PNEUMOTHORAX [None]
  - PULMONARY HAEMORRHAGE [None]
  - RENAL FAILURE [None]
  - RESPIRATORY FAILURE [None]
  - VENOOCCLUSIVE LIVER DISEASE [None]
  - VOMITING [None]
